FAERS Safety Report 17260887 (Version 1)
Quarter: 2020Q1

REPORT INFORMATION
  Report Type: Spontaneous
  Country: FR (occurrence: FR)
  Receive Date: 20200113
  Receipt Date: 20200113
  Transmission Date: 20200409
  Serious: Yes (Hospitalization)
  Sender: FDA-Public Use
  Company Number: FR-ROCHE-2514559

PATIENT
  Age: 22 Year
  Sex: Male

DRUGS (2)
  1. GAMMA-HYDROXYBUTYRIC ACID [Suspect]
     Active Substance: 4-HYDROXYBUTANOIC ACID
     Indication: PRODUCT USED FOR UNKNOWN INDICATION
     Dosage: QUANTITY NOT KNOWN?RECENT DOSE ON 10/SEP/2019
     Route: 065
  2. VALIUM [Suspect]
     Active Substance: DIAZEPAM
     Indication: INTENTIONAL PRODUCT MISUSE
     Dosage: QUANTITY NOT KNOWN
     Route: 065

REACTIONS (2)
  - Coma [Recovered/Resolved]
  - Drug abuse [Unknown]

NARRATIVE: CASE EVENT DATE: 20190910
